FAERS Safety Report 23974761 (Version 6)
Quarter: 2025Q1

REPORT INFORMATION
  Report Type: Report from Study
  Country: US (occurrence: US)
  Receive Date: 20240614
  Receipt Date: 20250110
  Transmission Date: 20250409
  Serious: Yes (Hospitalization, Other)
  Sender: UCB
  Company Number: US-UCBSA-2024012657

PATIENT
  Age: 54 Year
  Sex: Female

DRUGS (5)
  1. ROZANOLIXIZUMAB [Suspect]
     Active Substance: ROZANOLIXIZUMAB
     Indication: Myasthenia gravis
     Dosage: 280 MILLIGRAM, WEEKLY (QW) (280MG/2ML VIAL WEEKLY)
     Route: 058
     Dates: start: 20240308
  2. ROZANOLIXIZUMAB [Suspect]
     Active Substance: ROZANOLIXIZUMAB
     Dosage: 280 MILLIGRAM, WEEKLY (QW) /2ML VIAL WEEKLY
     Route: 058
     Dates: start: 20240427
  3. ROZANOLIXIZUMAB [Suspect]
     Active Substance: ROZANOLIXIZUMAB
     Dosage: 3RD CYCLE: 280 MILLIGRAM, WEEKLY (QW) /2ML VIAL WEEKLY
     Route: 058
     Dates: start: 20240808, end: 202412
  4. ROZANOLIXIZUMAB [Suspect]
     Active Substance: ROZANOLIXIZUMAB
     Dosage: 4TH CYCLE: 280 MILLIGRAM, WEEKLY (QW) /2ML VIAL WEEKLY
     Route: 058
     Dates: start: 20241226
  5. RITUXIMAB [Concomitant]
     Active Substance: RITUXIMAB
     Indication: Product used for unknown indication

REACTIONS (13)
  - Myasthenia gravis [Recovered/Resolved]
  - Pneumonia [Not Recovered/Not Resolved]
  - Fatigue [Recovered/Resolved]
  - Lung disorder [Not Recovered/Not Resolved]
  - Asthenia [Recovered/Resolved]
  - Dyspnoea [Recovered/Resolved]
  - Arthralgia [Not Recovered/Not Resolved]
  - Abdominal pain [Recovered/Resolved]
  - Musculoskeletal stiffness [Recovered/Resolved]
  - Oral herpes [Recovered/Resolved]
  - Pleural effusion [Not Recovered/Not Resolved]
  - Wrong technique in product usage process [Unknown]
  - Intentional dose omission [Unknown]

NARRATIVE: CASE EVENT DATE: 20240308
